FAERS Safety Report 17115015 (Version 1)
Quarter: 2019Q4

REPORT INFORMATION
  Report Type: Spontaneous
  Country: US (occurrence: US)
  Receive Date: 20191205
  Receipt Date: 20191205
  Transmission Date: 20200122
  Serious: No
  Sender: FDA-Public Use
  Company Number: US-MYLANLABS-2019M1115201

PATIENT
  Sex: Female
  Weight: 93 kg

DRUGS (1)
  1. FENTANYL TRANSDERMAL SYSTEM [Suspect]
     Active Substance: FENTANYL
     Indication: PAIN
     Dosage: 25 DOSE, (EVERY 3 DAYS) Q3D
     Route: 062
     Dates: start: 20191112

REACTIONS (3)
  - Product adhesion issue [Unknown]
  - Wrong technique in product usage process [Recovering/Resolving]
  - Product quality issue [Unknown]

NARRATIVE: CASE EVENT DATE: 2019
